FAERS Safety Report 18724578 (Version 1)
Quarter: 2021Q1

REPORT INFORMATION
  Report Type: Spontaneous
  Country: IT (occurrence: IT)
  Receive Date: 20210111
  Receipt Date: 20210111
  Transmission Date: 20210419
  Serious: Yes (Other)
  Sender: FDA-Public Use
  Company Number: IT-ABBVIE-21K-083-3724583-00

PATIENT
  Sex: Male

DRUGS (2)
  1. AZACITIDINE. [Suspect]
     Active Substance: AZACITIDINE
     Indication: BLASTIC PLASMACYTOID DENDRITIC CELL NEOPLASIA
     Route: 065
     Dates: start: 202006
  2. VENETOCLAX. [Suspect]
     Active Substance: VENETOCLAX
     Indication: BLASTIC PLASMACYTOID DENDRITIC CELL NEOPLASIA
     Dosage: 100/200/400 MG PER DAY IN ADDITION TO THE MONOCLONAL
     Route: 048
     Dates: start: 202006

REACTIONS (4)
  - Blastic plasmacytoid dendritic cell neoplasia [Recovered/Resolved]
  - Off label use [Not Recovered/Not Resolved]
  - Metastatic lymphoma [Unknown]
  - Blastic plasmacytoid dendritic cell neoplasia [Recovering/Resolving]

NARRATIVE: CASE EVENT DATE: 202006
